FAERS Safety Report 6023686-7 (Version None)
Quarter: 2008Q4

REPORT INFORMATION
  Report Type: 
  Country: None (occurrence: None)
  Receive Date: 20081226
  Receipt Date: 20081226
  Transmission Date: 20090506
  Serious: Yes (Death)
  Sender: FDA-Public Use
  Company Number: None

PATIENT
  Age: 73 Year
  Sex: Male
  Weight: 82 kg

DRUGS (4)
  1. BEVACIZUMAB 10MG/KG GENETECH [Suspect]
     Indication: PANCREATIC CARCINOMA METASTATIC
     Dosage: 835MG Q2WKS IV
     Route: 042
     Dates: start: 20070318, end: 20081028
  2. BEVACIZUMAB 10MG/KG GENETECH [Suspect]
  3. GEMCITABINE [Concomitant]
  4. DOCETAXEL [Concomitant]

REACTIONS (6)
  - DYSPNOEA [None]
  - INTERSTITIAL LUNG DISEASE [None]
  - PNEUMONIA [None]
  - PNEUMONITIS [None]
  - PRODUCTIVE COUGH [None]
  - PULMONARY TOXICITY [None]
